FAERS Safety Report 8967695 (Version 1)
Quarter: 2012Q4

REPORT INFORMATION
  Report Type: Spontaneous
  Country: ES (occurrence: None)
  Receive Date: 20121207
  Receipt Date: 20121207
  Transmission Date: 20130627
  Serious: Yes (Death, Hospitalization)
  Sender: FDA-Public Use
  Company Number: 2012-08663

PATIENT
  Age: 62 Year
  Sex: Male

DRUGS (4)
  1. OXALIPLATIN [Suspect]
     Indication: UROTHELIAL CARCINOMA BLADDER
     Dosage: 6 cycles, once every 21 days
  2. GEMCITABINE (GEMCITABINE) [Suspect]
     Indication: UROTHELIAL CARCINOMA BLADDER
     Dosage: 6 cycles, once every 21 days
  3. PARACETAMOL (PARACETAMOL) [Concomitant]
  4. TRAMADOL (TRAMADOL) [Concomitant]

REACTIONS (3)
  - Posterior reversible encephalopathy syndrome [None]
  - Pneumonia aspiration [None]
  - Blood pressure increased [None]
